FAERS Safety Report 11138417 (Version 1)
Quarter: 2015Q2

REPORT INFORMATION
  Report Type: Spontaneous
  Country: DK (occurrence: DK)
  Receive Date: 20150527
  Receipt Date: 20150527
  Transmission Date: 20150821
  Serious: Yes (Death, Other)
  Sender: FDA-Public Use
  Company Number: DK-CIPLA LTD.-2015DK04139

PATIENT

DRUGS (14)
  1. OXALIPLATIN. [Suspect]
     Active Substance: OXALIPLATIN
     Indication: CHOLESTASIS
  2. PEGFILGRASTIM [Suspect]
     Active Substance: PEGFILGRASTIM
     Indication: HEPATOCELLULAR CARCINOMA
     Dosage: 4 MG WAS GIVEN ON DAY 2 OF EACH CYCLE
     Route: 058
  3. SORAFENIB [Suspect]
     Active Substance: SORAFENIB
     Indication: CHOLESTASIS
     Dosage: 200 MG DAILY FOR 2 WEEKS AFTER A 4-WEEK BREAK
  4. ERLOTINIB [Suspect]
     Active Substance: ERLOTINIB
     Indication: HEPATOCELLULAR CARCINOMA
     Dosage: 100 MG DAILY
  5. GEMCITABINE [Suspect]
     Active Substance: GEMCITABINE\GEMCITABINE HYDROCHLORIDE
     Indication: HEPATOCELLULAR CARCINOMA
     Dosage: 1,000 MG/M2, DAY 1 AND 8 IN A 3-WEEK CYCLE
  6. DOCETAXEL. [Suspect]
     Active Substance: DOCETAXEL
     Indication: HEPATOCELLULAR CARCINOMA
     Dosage: 175 MG/M2 DAY 1 IN A 3-WEEK CYCLE
  7. OXALIPLATIN. [Suspect]
     Active Substance: OXALIPLATIN
     Indication: HEPATOCELLULAR CARCINOMA
     Dosage: 85 MG/M2 EVERY 2ND WEEK
  8. ERLOTINIB [Suspect]
     Active Substance: ERLOTINIB
     Indication: CHOLESTASIS
  9. CISPLATIN. [Suspect]
     Active Substance: CISPLATIN
     Indication: HEPATOCELLULAR CARCINOMA
     Dosage: 100 MG/M2 IN A 3-WEEK CYCLE
  10. CISPLATIN. [Suspect]
     Active Substance: CISPLATIN
     Indication: CHOLESTASIS
     Dosage: 70 MG/M2 DAY 1, 1 IN A 3-WEEK CYCLE
  11. SORAFENIB [Suspect]
     Active Substance: SORAFENIB
     Indication: HEPATOCELLULAR CARCINOMA
     Dosage: 400 MG P.O. B.I.D
  12. DOCETAXEL. [Suspect]
     Active Substance: DOCETAXEL
     Indication: CHOLESTASIS
  13. PEGFILGRASTIM [Suspect]
     Active Substance: PEGFILGRASTIM
     Indication: CHOLESTASIS
  14. GEMCITABINE [Suspect]
     Active Substance: GEMCITABINE\GEMCITABINE HYDROCHLORIDE
     Indication: CHOLESTASIS

REACTIONS (15)
  - Vomiting [Unknown]
  - Alopecia [Unknown]
  - Paraesthesia [Unknown]
  - Pruritus [Unknown]
  - Alpha 1 foetoprotein increased [Unknown]
  - Tinnitus [None]
  - Rash [Unknown]
  - Decreased appetite [Unknown]
  - Neutropenia [Unknown]
  - Anaemia [Unknown]
  - General physical health deterioration [Unknown]
  - Hepatic enzyme increased [None]
  - Diarrhoea [Unknown]
  - Death [Fatal]
  - Disease progression [Unknown]
